FAERS Safety Report 5174825-1 (Version None)
Quarter: 2006Q4

REPORT INFORMATION
  Report Type: 
  Country: None (occurrence: None)
  Receive Date: 20061214
  Receipt Date: 20061206
  Transmission Date: 20070319
  Serious: Yes (Other)
  Sender: FDA-Public Use
  Company Number: CA-MERCK-0612CAN00040

PATIENT
  Age: 70 Year

DRUGS (2)
  1. ZETIA [Suspect]
     Indication: HYPERCHOLESTEROLAEMIA
     Route: 048
  2. ATORVASTATIN CALCIUM [Concomitant]
     Route: 065

REACTIONS (1)
  - HEPATITIS C [None]
